FAERS Safety Report 9915275 (Version 1)
Quarter: 2014Q1

REPORT INFORMATION
  Report Type: Report from Study
  Country: US (occurrence: US)
  Receive Date: 20140221
  Receipt Date: 20140221
  Transmission Date: 20141002
  Serious: Yes (Hospitalization, Other)
  Sender: FDA-Public Use
  Company Number: US-ROCHE-1336284

PATIENT
  Age: 36 Year
  Sex: Male

DRUGS (6)
  1. LUCENTIS [Suspect]
     Indication: DIABETIC RETINAL OEDEMA
     Dosage: 10 MG/ML; 0.5 - 1.0 MG INJECTED
     Route: 050
     Dates: start: 20111116
  2. AVASTIN [Suspect]
     Indication: PRODUCT USED FOR UNKNOWN INDICATION
     Route: 050
  3. TROPICAMIDE [Concomitant]
     Route: 065
  4. PHENYLEPHRINE [Concomitant]
     Route: 065
  5. PROPARACAINE [Concomitant]
     Indication: ANAESTHESIA
     Route: 061
  6. EPINEPHRINE/LIDOCAINE HYDROCHLORIDE [Concomitant]
     Indication: ANAESTHESIA
     Route: 057

REACTIONS (12)
  - Staphylococcal infection [Unknown]
  - Diabetic retinal oedema [Unknown]
  - Glycosylated haemoglobin increased [Unknown]
  - Cataract [Unknown]
  - Visual impairment [Unknown]
  - Vitreous floaters [Recovered/Resolved]
  - Retinal disorder [Unknown]
  - Glare [Unknown]
  - Visual acuity reduced [Unknown]
  - Night blindness [Unknown]
  - Pupillary light reflex tests abnormal [Unknown]
  - Macular fibrosis [Unknown]
